FAERS Safety Report 23851708 (Version 1)
Quarter: 2024Q2

REPORT INFORMATION
  Report Type: Spontaneous
  Country: US (occurrence: US)
  Receive Date: 20240514
  Receipt Date: 20240514
  Transmission Date: 20240715
  Serious: Yes (Hospitalization)
  Sender: FDA-Public Use
  Company Number: US-PADAGIS-2024PAD00799

PATIENT

DRUGS (2)
  1. IBUPROFEN [Suspect]
     Active Substance: IBUPROFEN
     Indication: Abdominal pain
     Dosage: UNK
     Route: 065
  2. ACETAMINOPHEN [Suspect]
     Active Substance: ACETAMINOPHEN
     Indication: Abdominal pain
     Dosage: UNK
     Route: 065

REACTIONS (2)
  - Therapy partial responder [Unknown]
  - Product use in unapproved indication [Unknown]
